FAERS Safety Report 6194562-4 (Version None)
Quarter: 2009Q2

REPORT INFORMATION
  Report Type: 
  Country: None (occurrence: None)
  Receive Date: 20090519
  Receipt Date: 20090505
  Transmission Date: 20091009
  Serious: Yes (Hospitalization)
  Sender: FDA-Public Use
  Company Number: US-ROCHE-609898

PATIENT
  Sex: Male

DRUGS (8)
  1. PEG-INTERFERON ALFA 2A (RO 25-8310) [Suspect]
     Indication: HEPATITIS C
     Route: 058
     Dates: start: 20081029, end: 20090107
  2. PEG-INTERFERON ALFA 2A (RO 25-8310) [Suspect]
     Route: 058
     Dates: end: 20090112
  3. RIBAVIRIN [Suspect]
     Indication: HEPATITIS C
     Route: 048
     Dates: start: 20080929, end: 20090112
  4. BLINDED VX-950 [Suspect]
     Indication: HEPATITIS C
     Dosage: DOSE BLINDED
     Route: 048
     Dates: start: 20081029, end: 20090112
  5. ACETAMINOPHEN [Concomitant]
     Route: 048
     Dates: start: 20081029
  6. TICLID [Concomitant]
     Route: 048
     Dates: start: 20060101
  7. ALLOPURINOL [Concomitant]
     Route: 048
     Dates: start: 20060101
  8. DELAPRIDE [Concomitant]
     Indication: HYPERTENSION
     Route: 048
     Dates: start: 20020101

REACTIONS (1)
  - SYNCOPE [None]
